FAERS Safety Report 8956102 (Version 2)
Quarter: 2013Q2

REPORT INFORMATION
  Report Type: Spontaneous
  Country: DE (occurrence: ES)
  Receive Date: 20121210
  Receipt Date: 20130619
  Transmission Date: 20140414
  Serious: Yes (Other)
  Sender: FDA-Public Use
  Company Number: ES-FRI-1000040929

PATIENT
  Age: 75 Year
  Sex: Female

DRUGS (2)
  1. ROFLUMILAST [Suspect]
     Indication: CHRONIC OBSTRUCTIVE PULMONARY DISEASE
     Dosage: 1/2 TABLET ALTERNATING WITH 1 TABLET QOD
     Route: 048
     Dates: start: 20120901, end: 20120904
  2. ROFLUMILAST [Suspect]
     Dosage: 1/2 TABLET ALTERNATING WITH 1 TABLET QOD
     Route: 048
     Dates: start: 2012

REACTIONS (3)
  - Anal ulcer [Recovered/Resolved]
  - Nail disorder [Recovered/Resolved]
  - Wrong technique in drug usage process [Not Recovered/Not Resolved]
